FAERS Safety Report 10701566 (Version 1)
Quarter: 2015Q1

REPORT INFORMATION
  Report Type: Spontaneous
  Country: US (occurrence: US)
  Receive Date: 20150109
  Receipt Date: 20150109
  Transmission Date: 20150721
  Serious: Yes (Death)
  Sender: FDA-Public Use
  Company Number: US-CELGENE-USA-2015011136

PATIENT
  Age: 75 Year
  Sex: Male

DRUGS (3)
  1. REVLIMID [Suspect]
     Active Substance: LENALIDOMIDE
     Indication: PLASMA CELL MYELOMA
     Route: 048
     Dates: start: 201202, end: 2013
  2. REVLIMID [Suspect]
     Active Substance: LENALIDOMIDE
     Route: 048
     Dates: start: 20140425, end: 2014
  3. REVLIMID [Suspect]
     Active Substance: LENALIDOMIDE
     Route: 048
     Dates: start: 201309, end: 2014

REACTIONS (1)
  - Death [Fatal]

NARRATIVE: CASE EVENT DATE: 20141221
